FAERS Safety Report 5305681-6 (Version None)
Quarter: 2007Q2

REPORT INFORMATION
  Report Type: 
  Country: None (occurrence: None)
  Receive Date: 20070424
  Receipt Date: 20070413
  Transmission Date: 20071010
  Serious: Yes (Hospitalization)
  Sender: FDA-Public Use
  Company Number: JP-JNJFOC-20060600349

PATIENT
  Sex: Female
  Weight: 62 kg

DRUGS (12)
  1. REMICADE [Suspect]
  2. REMICADE [Suspect]
  3. REMICADE [Suspect]
  4. REMICADE [Suspect]
     Indication: CROHN'S DISEASE
  5. PARIET [Suspect]
     Indication: GASTRIC ULCER
     Route: 048
  6. PREDONINE [Suspect]
     Indication: BEHCET'S SYNDROME
     Route: 048
  7. PREDONINE [Suspect]
     Indication: CROHN'S DISEASE
     Route: 048
  8. PENTASA [Suspect]
     Indication: BEHCET'S SYNDROME
     Route: 048
  9. PENTASA [Suspect]
     Indication: CROHN'S DISEASE
     Route: 048
  10. MOBIC [Suspect]
     Indication: ARTHRALGIA
     Route: 048
  11. BENET [Suspect]
     Indication: OSTEOPOROSIS PROPHYLAXIS
     Route: 048
  12. LENDORMIN [Suspect]
     Indication: INSOMNIA
     Route: 048

REACTIONS (1)
  - PUSTULAR PSORIASIS [None]
